FAERS Safety Report 16533580 (Version 2)
Quarter: 2019Q3

REPORT INFORMATION
  Report Type: Spontaneous
  Country: US (occurrence: US)
  Receive Date: 20190705
  Receipt Date: 20190809
  Transmission Date: 20191004
  Serious: No
  Sender: FDA-Public Use
  Company Number: US-BAUSCH-BL-2019-019012

PATIENT
  Age: 31 Year
  Sex: Male
  Weight: 136.65 kg

DRUGS (2)
  1. XIFAXAN [Suspect]
     Active Substance: RIFAXIMIN
     Indication: IRRITABLE BOWEL SYNDROME
     Route: 048
     Dates: start: 20190619, end: 2019
  2. PROTONIX [Concomitant]
     Active Substance: PANTOPRAZOLE SODIUM
     Indication: PRODUCT USED FOR UNKNOWN INDICATION
     Route: 048
     Dates: start: 20190617

REACTIONS (7)
  - Dyspnoea [Recovered/Resolved]
  - Unevaluable event [Recovered/Resolved]
  - Alanine aminotransferase increased [Recovered/Resolved]
  - Sleep apnoea syndrome [Recovered/Resolved]
  - Fatigue [Recovered/Resolved]
  - Thirst [Recovered/Resolved]
  - Heart rate increased [Recovered/Resolved]

NARRATIVE: CASE EVENT DATE: 201906
